FAERS Safety Report 4992892-2 (Version None)
Quarter: 2006Q1

REPORT INFORMATION
  Report Type: 
  Country: None (occurrence: None)
  Receive Date: 20060315
  Receipt Date: 20060126
  Transmission Date: 20060701
  Serious: No
  Sender: FDA-Public Use
  Company Number: 2006RL000031

PATIENT
  Age: 70 Year
  Sex: Female

DRUGS (1)
  1. OMACOR [Suspect]
     Dosage: 4 GM;QD;PO
     Route: 048
     Dates: start: 20051101

REACTIONS (2)
  - BALANCE DISORDER [None]
  - TREMOR [None]
